FAERS Safety Report 23222003 (Version 1)
Quarter: 2023Q4

REPORT INFORMATION
  Report Type: Other
  Country: US (occurrence: None)
  Receive Date: 20231123
  Receipt Date: 20231123
  Transmission Date: 20240110
  Serious: Yes (Hospitalization, Other)
  Sender: FDA-Public Use
  Company Number: US-ROCHE-3272685

PATIENT
  Age: 71 Year
  Sex: Female
  Weight: 57.976 kg

DRUGS (16)
  1. ACTEMRA [Suspect]
     Active Substance: TOCILIZUMAB
     Indication: Rheumatoid arthritis
     Dosage: STARTING DOSE 8MG/KG
     Route: 058
     Dates: start: 2017, end: 20230224
  2. DIAZEPAM [Suspect]
     Active Substance: DIAZEPAM
     Indication: Muscle spasms
     Route: 048
  3. DOVATO [Concomitant]
     Active Substance: DOLUTEGRAVIR SODIUM\LAMIVUDINE
  4. CELEBREX [Concomitant]
     Active Substance: CELECOXIB
  5. SULFASALAZINE [Concomitant]
     Active Substance: SULFASALAZINE
  6. TYLENOL EXTRA STRENGTH [Concomitant]
     Active Substance: ACETAMINOPHEN
  7. VALTREX [Concomitant]
     Active Substance: VALACYCLOVIR HYDROCHLORIDE
  8. PREVACID [Concomitant]
     Active Substance: LANSOPRAZOLE
  9. RECLAST [Concomitant]
     Active Substance: ZOLEDRONIC ACID
  10. FLEXERIL [Concomitant]
     Active Substance: CYCLOBENZAPRINE HYDROCHLORIDE
  11. HYDROCODONE [Concomitant]
     Active Substance: HYDROCODONE
  12. ERGOCALCIFEROL [Concomitant]
     Active Substance: ERGOCALCIFEROL
  13. PYRIDOSTIGMINE [Concomitant]
     Active Substance: PYRIDOSTIGMINE
  14. CALCIUM [Concomitant]
     Active Substance: CALCIUM
  15. VANCOMYCIN [Concomitant]
     Active Substance: VANCOMYCIN
  16. DOXYCYCLINE [Concomitant]
     Active Substance: DOXYCYCLINE

REACTIONS (24)
  - Compression fracture [Not Recovered/Not Resolved]
  - Staphylococcal osteomyelitis [Recovered/Resolved]
  - Bacteraemia [Recovered/Resolved]
  - Device related infection [Recovered/Resolved]
  - Muscle strain [Recovered/Resolved]
  - Pain [Not Recovered/Not Resolved]
  - Ill-defined disorder [Recovered/Resolved]
  - Asthenia [Recovered/Resolved]
  - Cellulitis [Recovered/Resolved]
  - Discomfort [Not Recovered/Not Resolved]
  - Urticaria [Recovered/Resolved]
  - Blood cholesterol increased [Unknown]
  - Herpes virus infection [Recovered/Resolved]
  - Vitamin D decreased [Unknown]
  - Hypoaesthesia [Not Recovered/Not Resolved]
  - Paraesthesia [Not Recovered/Not Resolved]
  - Osteopenia [Not Recovered/Not Resolved]
  - Osteoporosis [Not Recovered/Not Resolved]
  - Blood creatine phosphokinase increased [Not Recovered/Not Resolved]
  - Neuralgia [Not Recovered/Not Resolved]
  - Hiatus hernia [Not Recovered/Not Resolved]
  - Alanine aminotransferase increased [Recovered/Resolved]
  - Aspartate aminotransferase increased [Recovered/Resolved]
  - Osteomyelitis [Recovering/Resolving]

NARRATIVE: CASE EVENT DATE: 20210801
